FAERS Safety Report 9773203 (Version 2)
Quarter: 2014Q2

REPORT INFORMATION
  Report Type: Spontaneous
  Country: US (occurrence: US)
  Receive Date: 20131219
  Receipt Date: 20140424
  Transmission Date: 20141212
  Serious: Yes (Hospitalization)
  Sender: FDA-Public Use
  Company Number: US-GLAXOSMITHKLINE-A1031378A

PATIENT
  Age: 42 Year
  Sex: 0

DRUGS (1)
  1. AVANDIA [Suspect]
     Indication: DIABETES MELLITUS
     Route: 048
     Dates: start: 2002, end: 2007

REACTIONS (3)
  - Myocardial infarction [Unknown]
  - Cardiac failure congestive [Unknown]
  - Coronary artery disease [Unknown]
